FAERS Safety Report 25098031 (Version 1)
Quarter: 2025Q1

REPORT INFORMATION
  Report Type: Spontaneous
  Country: US (occurrence: US)
  Receive Date: 20250320
  Receipt Date: 20250320
  Transmission Date: 20250409
  Serious: Yes (Other)
  Sender: TEVA
  Company Number: US-TEVA-VS-3309557

PATIENT
  Age: 5 Year
  Sex: Male

DRUGS (1)
  1. EPINEPHRINE [Suspect]
     Active Substance: EPINEPHRINE
     Indication: Product used for unknown indication
     Route: 065

REACTIONS (4)
  - Device defective [Unknown]
  - Device occlusion [Unknown]
  - Device physical property issue [Unknown]
  - Product tampering [Unknown]

NARRATIVE: CASE EVENT DATE: 20250101
